FAERS Safety Report 18482774 (Version 4)
Quarter: 2020Q4

REPORT INFORMATION
  Report Type: Spontaneous
  Country: US (occurrence: US)
  Receive Date: 20201109
  Receipt Date: 20201209
  Transmission Date: 20210114
  Serious: No
  Sender: FDA-Public Use
  Company Number: US-AMGEN-USASP2020181514

PATIENT
  Age: 42 Year
  Sex: Female
  Weight: 81.2 kg

DRUGS (2)
  1. NEULASTA [Suspect]
     Active Substance: PEGFILGRASTIM
     Indication: NEUTROPENIA
     Dosage: 0.6 MILLIGRAM, AFTER CHEMO ONCE
     Route: 058
  2. NEULASTA [Suspect]
     Active Substance: PEGFILGRASTIM
     Dosage: 0.6 MILLIGRAM, AFTER CHEMO ONCE
     Route: 058

REACTIONS (1)
  - Device power source issue [Unknown]

NARRATIVE: CASE EVENT DATE: 20201105
